FAERS Safety Report 5949997-9 (Version None)
Quarter: 2008Q4

REPORT INFORMATION
  Report Type: 
  Country: None (occurrence: None)
  Receive Date: 20081021
  Receipt Date: 20071130
  Transmission Date: 20090506
  Serious: Yes (Other)
  Sender: FDA-Public Use
  Company Number: HQWYE383211NOV04

PATIENT
  Age: 65 Year
  Sex: Female
  Weight: 63.56 kg

DRUGS (19)
  1. PREMARIN [Suspect]
     Indication: HORMONE REPLACEMENT THERAPY
     Dosage: ORAL
     Route: 048
     Dates: start: 19850101, end: 20000101
  2. CLIMARA [Suspect]
     Indication: HORMONE REPLACEMENT THERAPY
     Dosage: ORAL
     Route: 048
     Dates: start: 19950101, end: 19950101
  3. ESTRACE [Suspect]
     Indication: HORMONE REPLACEMENT THERAPY
     Dosage: ORAL
     Route: 048
     Dates: start: 19950101, end: 19970101
  4. MEDROXYPROGESTERONE [Suspect]
     Indication: HORMONE REPLACEMENT THERAPY
     Dosage: ORAL
     Route: 048
     Dates: start: 19950101, end: 19990101
  5. PREFEST [Suspect]
  6. PROVERA [Suspect]
     Indication: HORMONE REPLACEMENT THERAPY
     Dosage: ORAL
     Route: 048
     Dates: start: 19850101, end: 20000101
  7. LOTRISONE [Concomitant]
  8. PREDNISONE [Concomitant]
  9. EFFEXOR [Concomitant]
  10. NASACORT [Concomitant]
  11. GUAIFENEX (GUAIFENESIN/PHENYLEPHRINE HYDROCHLORIDE/PHENYLPROPANOLAMINE [Concomitant]
  12. SONATA [Concomitant]
  13. FLUOCINONIDE (FLUOCINOIDE) [Concomitant]
  14. DIFLUCAN [Concomitant]
  15. PRAVACHOL [Concomitant]
  16. LIPITOR [Concomitant]
  17. DIAZEPAM [Concomitant]
  18. FOSAMAX [Concomitant]
  19. ZOCOR [Concomitant]

REACTIONS (1)
  - BREAST CANCER [None]
